FAERS Safety Report 18115620 (Version 2)
Quarter: 2020Q3

REPORT INFORMATION
  Report Type: Report from Study
  Country: US (occurrence: US)
  Receive Date: 20200805
  Receipt Date: 20200909
  Transmission Date: 20201103
  Serious: Yes (Other)
  Sender: FDA-Public Use
  Company Number: US-BAYER-2020-155453

PATIENT
  Age: 50 Year
  Sex: Male
  Weight: 211.34 kg

DRUGS (5)
  1. ADEMPAS [Suspect]
     Active Substance: RIOCIGUAT
     Indication: PULMONARY ARTERIAL HYPERTENSION
     Dosage: 1.5 MG, TID
     Route: 048
     Dates: start: 2020
  2. ADEMPAS [Suspect]
     Active Substance: RIOCIGUAT
     Indication: PULMONARY ARTERIAL HYPERTENSION
     Dosage: UNK
     Dates: start: 20200522
  3. OPSUMIT [Concomitant]
     Active Substance: MACITENTAN
     Dosage: UNK
  4. LASIX [Concomitant]
     Active Substance: FUROSEMIDE
     Dosage: UNK
     Dates: end: 2020
  5. ADEMPAS [Suspect]
     Active Substance: RIOCIGUAT
     Indication: PULMONARY ARTERIAL HYPERTENSION
     Dosage: 2 MG, TID
     Route: 048
     Dates: start: 2020

REACTIONS (12)
  - Peripheral swelling [Recovering/Resolving]
  - Sleep apnoea syndrome [None]
  - Asthenia [None]
  - Dyspnoea exertional [Not Recovered/Not Resolved]
  - Abnormal weight gain [Recovering/Resolving]
  - Weight increased [None]
  - Constipation [Not Recovered/Not Resolved]
  - Gait disturbance [None]
  - Depression [None]
  - Dizziness postural [None]
  - Fatigue [None]
  - Crying [None]

NARRATIVE: CASE EVENT DATE: 2020
